FAERS Safety Report 5840105-1 (Version None)
Quarter: 2008Q3

REPORT INFORMATION
  Report Type: 
  Country: None (occurrence: None)
  Receive Date: 20080811
  Receipt Date: 20080804
  Transmission Date: 20090109
  Serious: Yes (Hospitalization)
  Sender: FDA-Public Use
  Company Number: B0532379A

PATIENT
  Age: 79 Year
  Sex: Male

DRUGS (6)
  1. NABUMETONE [Suspect]
     Indication: DRUG USE FOR UNKNOWN INDICATION
     Dosage: 1G TWICE PER DAY
     Route: 048
     Dates: start: 20080416, end: 20080531
  2. LANSOPRAZOLE [Concomitant]
     Dosage: 15MG FOUR TIMES PER DAY
     Route: 065
  3. DUTASTERIDE [Concomitant]
  4. LAMALINE [Concomitant]
  5. FLECTOR [Concomitant]
  6. ZOPLICONE [Concomitant]

REACTIONS (11)
  - CELL DEATH [None]
  - CHOLESTASIS [None]
  - COAGULOPATHY [None]
  - DRUG RASH WITH EOSINOPHILIA AND SYSTEMIC SYMPTOMS [None]
  - EOSINOPHILIA [None]
  - GENERAL PHYSICAL HEALTH DETERIORATION [None]
  - HEPATIC STEATOSIS [None]
  - LEUKOCYTOSIS [None]
  - PROTHROMBIN TIME SHORTENED [None]
  - PYREXIA [None]
  - RASH [None]
